FAERS Safety Report 9667734 (Version 3)
Quarter: 2013Q4

REPORT INFORMATION
  Report Type: Report from Study
  Country: FI (occurrence: FI)
  Receive Date: 20131104
  Receipt Date: 20131216
  Transmission Date: 20140711
  Serious: Yes (Life-Threatening, Hospitalization)
  Sender: FDA-Public Use
  Company Number: FI-NOVOPROD-391209

PATIENT
  Age: 66 Year
  Sex: Male
  Weight: 99.1 kg

DRUGS (2)
  1. LIRAGLUTIDE FLEXPEN [Suspect]
     Indication: TYPE 2 DIABETES MELLITUS
     Dosage: 1.8 MG, QD
     Route: 058
     Dates: start: 20110830, end: 20131017
  2. LIRAGLUTIDE FLEXPEN [Suspect]
     Dosage: 1.8 MG, QD
     Route: 058
     Dates: start: 20131022

REACTIONS (1)
  - Coronary angioplasty [Recovered/Resolved]
